FAERS Safety Report 18539923 (Version 1)
Quarter: 2020Q4

REPORT INFORMATION
  Report Type: Spontaneous
  Country: CN (occurrence: CN)
  Receive Date: 20201124
  Receipt Date: 20201124
  Transmission Date: 20210114
  Serious: Yes (Hospitalization, Other)
  Sender: FDA-Public Use
  Company Number: CN-PFIZER INC-2020461230

PATIENT
  Age: 6 Month
  Sex: Male
  Weight: 9 kg

DRUGS (2)
  1. MEPEM [Suspect]
     Active Substance: MEROPENEM
     Dosage: 0.4 G, 3X/DAY
     Route: 041
     Dates: start: 20200906, end: 20200924
  2. MEPEM [Suspect]
     Active Substance: MEROPENEM
     Indication: ANTI-INFECTIVE THERAPY
     Dosage: 0.46 G, 3X/DAY
     Route: 041
     Dates: start: 20200903, end: 20200906

REACTIONS (4)
  - Superinfection fungal [Recovering/Resolving]
  - Aphthous ulcer [Recovering/Resolving]
  - Rash [Recovering/Resolving]
  - Dysbiosis [Recovering/Resolving]

NARRATIVE: CASE EVENT DATE: 20200907
